FAERS Safety Report 16377877 (Version 5)
Quarter: 2019Q3

REPORT INFORMATION
  Report Type: Report from Study
  Country: US (occurrence: US)
  Receive Date: 20190531
  Receipt Date: 20190917
  Transmission Date: 20191004
  Serious: Yes (Death, Hospitalization, Other)
  Sender: FDA-Public Use
  Company Number: US-JNJFOC-20190541116

PATIENT
  Sex: Male

DRUGS (17)
  1. EFUDEX [Concomitant]
     Active Substance: FLUOROURACIL
     Route: 061
  2. LANSOPRAZOLE. [Concomitant]
     Active Substance: LANSOPRAZOLE
  3. LOSARTAN. [Concomitant]
     Active Substance: LOSARTAN
  4. VITAMIN D                          /00107901/ [Concomitant]
     Active Substance: ERGOCALCIFEROL
  5. CYANOCOBALAMIN. [Concomitant]
     Active Substance: CYANOCOBALAMIN
  6. MORPHINE [Concomitant]
     Active Substance: MORPHINE
  7. IMBRUVICA [Suspect]
     Active Substance: IBRUTINIB
     Indication: CHRONIC LYMPHOCYTIC LEUKAEMIA
     Route: 048
     Dates: start: 20180401
  8. HALDOL [Concomitant]
     Active Substance: HALOPERIDOL
  9. DONEPEZIL. [Concomitant]
     Active Substance: DONEPEZIL
  10. SIMVASTATIN. [Concomitant]
     Active Substance: SIMVASTATIN
  11. AMLODIPINE [Concomitant]
     Active Substance: AMLODIPINE BESYLATE
  12. CARBIDOPA AND LEVODOPA [Concomitant]
     Active Substance: CARBIDOPA\LEVODOPA
  13. CLONAZEPAM. [Concomitant]
     Active Substance: CLONAZEPAM
  14. VESICARE [Concomitant]
     Active Substance: SOLIFENACIN SUCCINATE
  15. ASPRIN [Concomitant]
     Active Substance: ASPIRIN
  16. SEROQUEL [Concomitant]
     Active Substance: QUETIAPINE FUMARATE
  17. DULOXETINE. [Concomitant]
     Active Substance: DULOXETINE

REACTIONS (16)
  - Delusion [Not Recovered/Not Resolved]
  - Dysphagia [Not Recovered/Not Resolved]
  - Cognitive disorder [Not Recovered/Not Resolved]
  - Insomnia [Not Recovered/Not Resolved]
  - Gastrooesophageal reflux disease [Not Recovered/Not Resolved]
  - Death [Fatal]
  - Pleural thickening [Unknown]
  - White blood cell count decreased [Unknown]
  - Lymphadenopathy [Unknown]
  - Pneumonia aspiration [Not Recovered/Not Resolved]
  - Skin disorder [Unknown]
  - Appetite disorder [Unknown]
  - Anxiety [Not Recovered/Not Resolved]
  - Pulmonary mass [Unknown]
  - Communication disorder [Unknown]
  - Decreased immune responsiveness [Unknown]

NARRATIVE: CASE EVENT DATE: 2018
